FAERS Safety Report 5965951-5 (Version None)
Quarter: 2008Q4

REPORT INFORMATION
  Report Type: 
  Country: None (occurrence: None)
  Receive Date: 20081125
  Receipt Date: 20081114
  Transmission Date: 20090506
  Serious: Yes (Other)
  Sender: FDA-Public Use
  Company Number: EC-ELI_LILLY_AND_COMPANY-EC200811004150

PATIENT
  Age: 72 Year
  Sex: Male

DRUGS (2)
  1. TADALAFIL [Suspect]
     Indication: ERECTILE DYSFUNCTION
     Dosage: 10 MG, 2/W
     Route: 048
     Dates: start: 20080301
  2. CARVEDILOL [Concomitant]
     Indication: HYPERTENSION

REACTIONS (1)
  - ARRHYTHMIA [None]
